FAERS Safety Report 20540614 (Version 1)
Quarter: 2022Q1

REPORT INFORMATION
  Report Type: Spontaneous
  Country: BR (occurrence: BR)
  Receive Date: 20220302
  Receipt Date: 20220302
  Transmission Date: 20220424
  Serious: Yes (Other)
  Sender: FDA-Public Use
  Company Number: BR-TAKEDA-2022TUS013442

PATIENT

DRUGS (1)
  1. LISDEXAMFETAMINE DIMESYLATE [Suspect]
     Active Substance: LISDEXAMFETAMINE DIMESYLATE
     Indication: Attention deficit hyperactivity disorder
     Dosage: 50 MILLIGRAM
     Route: 065

REACTIONS (6)
  - Arrhythmia [Unknown]
  - Therapeutic product effect decreased [Unknown]
  - Anger [Unknown]
  - Aggression [Unknown]
  - Product quality issue [Unknown]
  - Feeling abnormal [Unknown]
